FAERS Safety Report 8157179-8 (Version None)
Quarter: 2012Q1

REPORT INFORMATION
  Report Type: 
  Country: None (occurrence: None)
  Receive Date: 20120222
  Receipt Date: 20120208
  Transmission Date: 20120608
  Serious: Yes (Other)
  Sender: FDA-Public Use
  Company Number: DE-ROCHE-1037442

PATIENT

DRUGS (1)
  1. ACTEMRA [Suspect]
     Indication: RHEUMATOID ARTHRITIS

REACTIONS (6)
  - PNEUMONIA [None]
  - CARDIOMYOPATHY [None]
  - BRONCHITIS [None]
  - ERYSIPELAS [None]
  - ORAL HERPES [None]
  - FUNGAL INFECTION [None]
